FAERS Safety Report 8791142 (Version 1)
Quarter: 2012Q4

REPORT INFORMATION
  Report Type: Spontaneous
  Country: US (occurrence: None)
  Receive Date: 20120913
  Receipt Date: 20120913
  Transmission Date: 20130627
  Serious: Yes (Other)
  Sender: FDA-Public Use
  Company Number: None

PATIENT
  Age: 41 None

DRUGS (1)
  1. PENTOSAN POLYSULFATE SODIUM [Suspect]
     Indication: CYSTITIS INTERSTITIAL
     Dates: end: 201208

REACTIONS (4)
  - Anxiety [None]
  - Heart rate increased [None]
  - Diarrhoea [None]
  - Alopecia [None]
